FAERS Safety Report 20058411 (Version 2)
Quarter: 2022Q1

REPORT INFORMATION
  Report Type: Spontaneous
  Country: US (occurrence: US)
  Receive Date: 20211111
  Receipt Date: 20220210
  Transmission Date: 20220423
  Serious: No
  Sender: FDA-Public Use
  Company Number: US-MORPHOSYS US-2021-MOR001201-US

PATIENT
  Age: 64 Year
  Sex: Male
  Weight: 75.057 kg

DRUGS (1)
  1. MONJUVI [Suspect]
     Active Substance: TAFASITAMAB-CXIX
     Indication: Diffuse large B-cell lymphoma
     Dosage: 995 MILLIGRAM WEEKLY
     Route: 042
     Dates: start: 20210611, end: 20210910

REACTIONS (1)
  - Disease progression [Not Recovered/Not Resolved]
